FAERS Safety Report 8575162-5 (Version None)
Quarter: 2012Q3

REPORT INFORMATION
  Report Type: 
  Country: None (occurrence: None)
  Receive Date: 20120807
  Receipt Date: 20120731
  Transmission Date: 20120928
  Serious: Yes (Hospitalization, Other)
  Sender: FDA-Public Use
  Company Number: US-JNJFOC-20120707253

PATIENT
  Age: 32 Year
  Sex: Female

DRUGS (9)
  1. SODIUM CITRATE [Suspect]
     Indication: PROPHYLAXIS
     Dosage: 30 CC
     Route: 048
  2. DIPHENHYDRAMINE HCL [Suspect]
     Indication: PROPHYLAXIS
     Route: 042
  3. BUPIVACAINE HYDROCHLORIDE W/EPINEPHRINE [Suspect]
     Indication: SPINAL ANAESTHESIA
     Dosage: 1.66 CC
     Route: 065
  4. CETIRIZINE HYDROCHLORIDE [Suspect]
     Indication: MASTOCYTOSIS
     Route: 065
  5. CEFAZOLIN [Suspect]
     Indication: PROPHYLAXIS
     Route: 042
  6. DEXAMETHASONE [Suspect]
     Indication: PROPHYLAXIS
     Route: 042
  7. PHENYLEPHRINE HCL [Suspect]
     Indication: CAESAREAN SECTION
     Route: 042
  8. CETIRIZINE HYDROCHLORIDE [Suspect]
     Indication: PROPHYLAXIS
     Route: 065
  9. FENTANYL [Suspect]
     Indication: SPINAL ANAESTHESIA
     Route: 065

REACTIONS (9)
  - CAESAREAN SECTION [None]
  - DYSPNOEA [None]
  - BLOOD PRESSURE DECREASED [None]
  - THROAT TIGHTNESS [None]
  - INFLUENZA LIKE ILLNESS [None]
  - OXYGEN SATURATION DECREASED [None]
  - PREMATURE DELIVERY [None]
  - MATERNAL EXPOSURE DURING PREGNANCY [None]
  - OFF LABEL USE [None]
